FAERS Safety Report 6359984-7 (Version None)
Quarter: 2009Q3

REPORT INFORMATION
  Report Type: 
  Country: None (occurrence: None)
  Receive Date: 20090917
  Receipt Date: 20090909
  Transmission Date: 20100115
  Serious: Yes (Other)
  Sender: FDA-Public Use
  Company Number: US-GENENTECH-290261

PATIENT
  Age: 63 Year
  Sex: Female

DRUGS (1)
  1. RITUXAN [Suspect]
     Indication: ANGIOCENTRIC LYMPHOMA
     Dosage: UNK
     Route: 042
     Dates: start: 20071001, end: 20090517

REACTIONS (1)
  - HEPATITIS VIRAL [None]
